FAERS Safety Report 6297227-3 (Version None)
Quarter: 2009Q3

REPORT INFORMATION
  Report Type: 
  Country: None (occurrence: None)
  Receive Date: 20090805
  Receipt Date: 20070518
  Transmission Date: 20100115
  Serious: Yes (Hospitalization, Other)
  Sender: FDA-Public Use
  Company Number: US-ASTRAZENECA-2006UW12092

PATIENT
  Age: 211 Month
  Sex: Male
  Weight: 106.1 kg

DRUGS (8)
  1. SEROQUEL [Suspect]
     Route: 048
     Dates: start: 20030701, end: 20031201
  2. SEROQUEL [Suspect]
     Route: 048
     Dates: start: 20040918
  3. ZYPREXA [Suspect]
     Dates: start: 20030101
  4. ZYPREXA [Suspect]
     Route: 048
     Dates: start: 20030722
  5. PAXIL [Suspect]
     Route: 048
     Dates: start: 20031124
  6. RISPERDAL [Concomitant]
  7. GLYBURIDE [Concomitant]
     Route: 048
     Dates: start: 20040501
  8. PROTONIX [Concomitant]
     Dates: start: 20030422

REACTIONS (8)
  - BLOOD GLUCOSE INCREASED [None]
  - CHOLELITHIASIS [None]
  - DIABETES MELLITUS [None]
  - HYPERGLYCAEMIA [None]
  - PANCREATIC DISORDER [None]
  - PANCREATITIS ACUTE [None]
  - PANCREATITIS RELAPSING [None]
  - TYPE 2 DIABETES MELLITUS [None]
